FAERS Safety Report 20865932 (Version 6)
Quarter: 2022Q3

REPORT INFORMATION
  Report Type: Report from Study
  Country: US (occurrence: US)
  Receive Date: 20220524
  Receipt Date: 20220919
  Transmission Date: 20221026
  Serious: No
  Sender: FDA-Public Use
  Company Number: US-BRISTOL-MYERS SQUIBB COMPANY-2022-044733

PATIENT
  Age: 41 Year
  Sex: Female

DRUGS (3)
  1. ORENCIA [Suspect]
     Active Substance: ABATACEPT
     Indication: Rheumatoid arthritis
     Dosage: WEEKLY
     Route: 058
     Dates: start: 20220427
  2. ORENCIA [Suspect]
     Active Substance: ABATACEPT
     Indication: Synovitis
     Route: 058
     Dates: start: 20220427
  3. ORENCIA [Suspect]
     Active Substance: ABATACEPT
     Indication: Tenosynovitis
     Route: 058

REACTIONS (10)
  - Skin discolouration [Unknown]
  - Pain in extremity [Unknown]
  - Back pain [Unknown]
  - Amnesia [Unknown]
  - Drug ineffective [Unknown]
  - Confusional state [Unknown]
  - Arthralgia [Unknown]
  - Myalgia [Unknown]
  - Fatigue [Unknown]
  - Dizziness [Recovered/Resolved]

NARRATIVE: CASE EVENT DATE: 20220601
